FAERS Safety Report 8402078-7 (Version None)
Quarter: 2012Q2

REPORT INFORMATION
  Report Type: 
  Country: None (occurrence: None)
  Receive Date: 20120601
  Receipt Date: 20120529
  Transmission Date: 20120825
  Serious: Yes (Death, Other)
  Sender: FDA-Public Use
  Company Number: GXKR2009DK07838

PATIENT
  Sex: Male

DRUGS (2)
  1. FLUOXETINE [Suspect]
     Dosage: 20 MG, QD
     Route: 064
     Dates: end: 20080821
  2. FLUOXETINE [Suspect]
     Indication: DEPRESSION

REACTIONS (8)
  - PREMATURE BABY [None]
  - EXPOSURE DURING BREAST FEEDING [None]
  - CEREBRAL DISORDER [None]
  - NEONATAL ANOXIA [None]
  - CARDIOVASCULAR DISORDER [None]
  - JAUNDICE NEONATAL [None]
  - LOW BIRTH WEIGHT BABY [None]
  - FOETAL EXPOSURE DURING PREGNANCY [None]
